FAERS Safety Report 23297267 (Version 1)
Quarter: 2023Q4

REPORT INFORMATION
  Report Type: Report from Study
  Country: US (occurrence: US)
  Receive Date: 20231214
  Receipt Date: 20231214
  Transmission Date: 20240109
  Serious: Yes (Other)
  Sender: FDA-Public Use
  Company Number: US-MYLANLABS-2023M1132074

PATIENT
  Age: 34 Year
  Sex: Female

DRUGS (10)
  1. BUPRENORPHINE HYDROCHLORIDE\NALOXONE HYDROCHLORIDE [Suspect]
     Active Substance: BUPRENORPHINE HYDROCHLORIDE\NALOXONE HYDROCHLORIDE
     Indication: Drug use disorder
     Dosage: 2 MILLIGRAM
     Route: 060
  2. BUPRENORPHINE HYDROCHLORIDE\NALOXONE HYDROCHLORIDE [Suspect]
     Active Substance: BUPRENORPHINE HYDROCHLORIDE\NALOXONE HYDROCHLORIDE
     Dosage: 0.5 MILLIGRAM, Q6H (FOR FIRST 24H)
     Route: 060
  3. BUPRENORPHINE HYDROCHLORIDE\NALOXONE HYDROCHLORIDE [Suspect]
     Active Substance: BUPRENORPHINE HYDROCHLORIDE\NALOXONE HYDROCHLORIDE
     Dosage: 1 MILLIGRAM, Q6H (FOR SECOND 24H)
     Route: 060
  4. BUPRENORPHINE HYDROCHLORIDE\NALOXONE HYDROCHLORIDE [Suspect]
     Active Substance: BUPRENORPHINE HYDROCHLORIDE\NALOXONE HYDROCHLORIDE
     Dosage: 2 MILLIGRAM, Q6H (FOR THIRD 24H)
     Route: 060
  5. BUPRENORPHINE HYDROCHLORIDE\NALOXONE HYDROCHLORIDE [Suspect]
     Active Substance: BUPRENORPHINE HYDROCHLORIDE\NALOXONE HYDROCHLORIDE
     Dosage: 8 MILLIGRAM, BID (MAINTENANCE DOSE)
     Route: 060
  6. NALOXONE [Suspect]
     Active Substance: NALOXONE
     Indication: Drug use disorder
     Dosage: UNK
     Route: 065
  7. CLONIDINE [Suspect]
     Active Substance: CLONIDINE
     Indication: Anxiety
     Dosage: 0.2 MILLIGRAM, TID (THRICE DAILY)
     Route: 065
  8. CLONIDINE [Suspect]
     Active Substance: CLONIDINE
     Indication: Irritability
  9. HYDROXYZINE [Suspect]
     Active Substance: HYDROXYZINE HYDROCHLORIDE
     Indication: Anxiety
     Dosage: UNK
     Route: 065
  10. HYDROXYZINE [Suspect]
     Active Substance: HYDROXYZINE HYDROCHLORIDE
     Indication: Irritability

REACTIONS (3)
  - Drug withdrawal syndrome [Unknown]
  - Maternal exposure during pregnancy [Unknown]
  - Off label use [Unknown]
